FAERS Safety Report 23451458 (Version 2)
Quarter: 2025Q3

REPORT INFORMATION
  Report Type: Spontaneous
  Country: US (occurrence: US)
  Receive Date: 20240129
  Receipt Date: 20250818
  Transmission Date: 20251021
  Serious: No
  Sender: SANOFI AVENTIS
  Company Number: US-SA-SAC20240124000239

PATIENT
  Age: 75 Year
  Sex: Female

DRUGS (1)
  1. DUPIXENT [Suspect]
     Active Substance: DUPILUMAB
     Indication: Asthma
     Dosage: 200 MG, QOW
     Route: 058

REACTIONS (4)
  - COVID-19 [Recovered/Resolved]
  - Muscle spasms [Unknown]
  - Incontinence [Unknown]
  - Balance disorder [Unknown]

NARRATIVE: CASE EVENT DATE: 20240101
